FAERS Safety Report 5394742-1 (Version None)
Quarter: 2007Q3

REPORT INFORMATION
  Report Type: 
  Country: None (occurrence: None)
  Receive Date: 20070723
  Receipt Date: 20070711
  Transmission Date: 20080115
  Serious: Yes (Hospitalization, Other)
  Sender: FDA-Public Use
  Company Number: US-PFIZER INC-2007057081

PATIENT
  Sex: Male
  Weight: 70.454 kg

DRUGS (9)
  1. TIKOSYN [Suspect]
     Indication: ATRIAL FIBRILLATION
     Dosage: TEXT:^250MG^ BID EVERY DAY TDD:^500MG^
  2. CIPROFLOXACIN [Suspect]
     Indication: SALMONELLOSIS
     Dosage: TEXT:500MG BID EVERY DAY TDD:1000MG
  3. ALLOPURINOL [Concomitant]
  4. COUMADIN [Concomitant]
  5. TOPROL-XL [Concomitant]
  6. SLOW-FE [Concomitant]
  7. FOLIC ACID [Concomitant]
  8. VITAMIN B-12 [Concomitant]
  9. ANTIBIOTICS [Concomitant]

REACTIONS (2)
  - HEART RATE INCREASED [None]
  - SALMONELLOSIS [None]
